FAERS Safety Report 5580498-6 (Version None)
Quarter: 2008Q1

REPORT INFORMATION
  Report Type: 
  Country: None (occurrence: None)
  Receive Date: 20080103
  Receipt Date: 20071227
  Transmission Date: 20080703
  Serious: Yes (Hospitalization, Other)
  Sender: FDA-Public Use
  Company Number: CH-ELI_LILLY_AND_COMPANY-CH200712005082

PATIENT
  Age: 52 Year
  Sex: Male

DRUGS (6)
  1. BYETTA [Suspect]
     Dosage: UNK UNK, 2/D
     Route: 058
     Dates: end: 20071209
  2. LEVEMIR [Interacting]
     Dosage: 10 IU, 2/D
     Route: 058
     Dates: end: 20071209
  3. LEVEMIR [Interacting]
     Dosage: UNK, UNKNOWN
     Route: 058
  4. CEDUR [Interacting]
     Dosage: 1 D/F, DAILY (1/D)
     Route: 048
  5. CREON [Concomitant]
     Dosage: 1 D/F, DAILY (1/D)
     Route: 048
  6. PANTOPRAZOLE SODIUM [Concomitant]
     Dosage: 1 D/F, DAILY (1/D)
     Route: 048

REACTIONS (3)
  - DRUG INTERACTION [None]
  - EPILEPSY [None]
  - HYPOGLYCAEMIA [None]
